FAERS Safety Report 10367972 (Version 1)
Quarter: 2014Q3

REPORT INFORMATION
  Report Type: Spontaneous
  Country: JP (occurrence: None)
  Receive Date: 20140805
  Receipt Date: 20140805
  Transmission Date: 20150326
  Serious: Yes (Other)
  Sender: FDA-Public Use
  Company Number: FK201402706

PATIENT
  Age: 57 Year
  Sex: Male

DRUGS (11)
  1. PHYSIO 140 [Concomitant]
  2. PROPOFOL. [Concomitant]
     Active Substance: PROPOFOL
  3. EFEDORIN [Concomitant]
  4. ESLAX [Concomitant]
     Active Substance: ROCURONIUM BROMIDE
  5. MIRACID [Concomitant]
  6. BICARBON [Concomitant]
     Active Substance: SODIUM BICARBONATE
  7. SOLU-MEDROL [Concomitant]
     Active Substance: METHYLPREDNISOLONE SODIUM SUCCINATE
  8. NEOSYNESIN [Concomitant]
     Active Substance: PHENYLEPHRINE HYDROCHLORIDE
  9. VOLUVEN [Suspect]
     Active Substance: HYDROXYETHYL STARCH 130/0.4
     Indication: FLUID REPLACEMENT
     Dosage: 550 ML, (200ML AND 350ML), INTRAVENOUS DRIP
     Route: 041
     Dates: start: 20140616, end: 20140616
  10. ULTIVA [Concomitant]
     Active Substance: REMIFENTANIL HYDROCHLORIDE
  11. SEVOFLURANE (SEVOFLURANE) (SEVOFLURANE) [Concomitant]
     Active Substance: SEVOFLURANE

REACTIONS (3)
  - Flushing [None]
  - Blood pressure decreased [None]
  - Anaphylactic reaction [None]

NARRATIVE: CASE EVENT DATE: 20140616
